FAERS Safety Report 13409236 (Version 3)
Quarter: 2017Q4

REPORT INFORMATION
  Report Type: Spontaneous
  Country: US (occurrence: US)
  Receive Date: 20170406
  Receipt Date: 20171211
  Transmission Date: 20180320
  Serious: Yes (Other)
  Sender: FDA-Public Use
  Company Number: US-JNJFOC-20170117162

PATIENT
  Sex: Male

DRUGS (19)
  1. RISPERDAL [Suspect]
     Active Substance: RISPERIDONE
     Indication: INTENTIONAL SELF-INJURY
     Route: 048
     Dates: start: 20140113
  2. RISPERDAL [Suspect]
     Active Substance: RISPERIDONE
     Indication: OPPOSITIONAL DEFIANT DISORDER
     Route: 048
     Dates: start: 20140113
  3. RISPERIDONE. [Suspect]
     Active Substance: RISPERIDONE
     Indication: PRODUCT USED FOR UNKNOWN INDICATION
     Route: 048
  4. RISPERDAL [Suspect]
     Active Substance: RISPERIDONE
     Indication: OPPOSITIONAL DEFIANT DISORDER
     Route: 048
     Dates: start: 20060804
  5. RISPERDAL [Suspect]
     Active Substance: RISPERIDONE
     Indication: AUTISM SPECTRUM DISORDER
     Route: 048
     Dates: start: 20070403, end: 20070921
  6. RISPERDAL [Suspect]
     Active Substance: RISPERIDONE
     Indication: AUTISM SPECTRUM DISORDER
     Route: 048
     Dates: start: 20060804
  7. RISPERDAL [Suspect]
     Active Substance: RISPERIDONE
     Indication: INTENTIONAL SELF-INJURY
     Route: 048
     Dates: start: 20110531
  8. RISPERDAL [Suspect]
     Active Substance: RISPERIDONE
     Indication: INTENTIONAL SELF-INJURY
     Dosage: VARIABLE DOSES OF 0.5 MG AND 0.25 MG
     Route: 048
     Dates: start: 20111122, end: 20130611
  9. RISPERDAL [Suspect]
     Active Substance: RISPERIDONE
     Indication: OPPOSITIONAL DEFIANT DISORDER
     Route: 048
     Dates: start: 20110531
  10. RISPERDAL [Suspect]
     Active Substance: RISPERIDONE
     Indication: OPPOSITIONAL DEFIANT DISORDER
     Route: 048
     Dates: start: 20070403, end: 20070921
  11. RISPERIDONE. [Suspect]
     Active Substance: RISPERIDONE
     Indication: OPPOSITIONAL DEFIANT DISORDER
     Dosage: IN VARYING DOSE OF 0.25 AND 0.5 MG
     Route: 065
     Dates: start: 20111128, end: 20130507
  12. RISPERIDONE. [Suspect]
     Active Substance: RISPERIDONE
     Indication: AUTISM SPECTRUM DISORDER
     Dosage: IN VARYING DOSE OF 0.25 AND 0.5 MG
     Route: 065
     Dates: start: 20111128, end: 20130507
  13. RISPERDAL [Suspect]
     Active Substance: RISPERIDONE
     Indication: INTENTIONAL SELF-INJURY
     Route: 048
     Dates: start: 20060804
  14. RISPERDAL [Suspect]
     Active Substance: RISPERIDONE
     Indication: OPPOSITIONAL DEFIANT DISORDER
     Dosage: VARIABLE DOSES OF 0.5 MG AND 0.25 MG
     Route: 048
     Dates: start: 20111122, end: 20130611
  15. RISPERDAL [Suspect]
     Active Substance: RISPERIDONE
     Indication: INTENTIONAL SELF-INJURY
     Route: 048
     Dates: start: 20070403, end: 20070921
  16. RISPERDAL [Suspect]
     Active Substance: RISPERIDONE
     Indication: AUTISM SPECTRUM DISORDER
     Dosage: VARIABLE DOSES OF 0.5 MG AND 0.25 MG
     Route: 048
     Dates: start: 20111122, end: 20130611
  17. RISPERDAL [Suspect]
     Active Substance: RISPERIDONE
     Indication: AUTISM SPECTRUM DISORDER
     Route: 048
     Dates: start: 20140113
  18. RISPERDAL [Suspect]
     Active Substance: RISPERIDONE
     Indication: AUTISM SPECTRUM DISORDER
     Route: 048
     Dates: start: 20110531
  19. RISPERDAL M-TAB [Suspect]
     Active Substance: RISPERIDONE
     Indication: PRODUCT USED FOR UNKNOWN INDICATION
     Route: 048

REACTIONS (3)
  - Obesity [Unknown]
  - Emotional distress [Unknown]
  - Gynaecomastia [Unknown]

NARRATIVE: CASE EVENT DATE: 2008
